FAERS Safety Report 8223921-0 (Version None)
Quarter: 2012Q1

REPORT INFORMATION
  Report Type: 
  Country: None (occurrence: None)
  Receive Date: 20120321
  Receipt Date: 20120321
  Transmission Date: 20120608
  Serious: Yes (Death, Hospitalization, Other)
  Sender: FDA-Public Use
  Company Number: US-PFIZER INC-2012067128

PATIENT
  Age: 79 Year
  Sex: Male

DRUGS (1)
  1. MS CONTIN [Suspect]
     Indication: CANCER PAIN
     Dosage: 30 MG, 3X/DAY

REACTIONS (5)
  - UROSEPSIS [None]
  - CONFUSIONAL STATE [None]
  - AGGRESSION [None]
  - URINARY TRACT INFECTION [None]
  - OVERDOSE [None]
